FAERS Safety Report 9546431 (Version 1)
Quarter: 2013Q3

REPORT INFORMATION
  Report Type: Spontaneous
  Country: US (occurrence: US)
  Receive Date: 20130923
  Receipt Date: 20130923
  Transmission Date: 20140515
  Serious: No
  Sender: FDA-Public Use
  Company Number: US-GLAXOSMITHKLINE-A1033715A

PATIENT
  Age: 73 Year
  Sex: Female

DRUGS (1)
  1. ABREVA [Suspect]
     Indication: DERMATITIS
     Dates: start: 20130715, end: 20130716

REACTIONS (2)
  - Application site pain [Recovered/Resolved]
  - Off label use [Unknown]
